FAERS Safety Report 4477924-2 (Version None)
Quarter: 2004Q3

REPORT INFORMATION
  Report Type: 
  Country: None (occurrence: None)
  Receive Date: 20040923
  Receipt Date: 20040805
  Transmission Date: 20050211
  Serious: No
  Sender: FDA-Public Use
  Company Number: USA040874626

PATIENT
  Age: 79 Year
  Sex: Female

DRUGS (11)
  1. FORTEO [Suspect]
     Indication: OSTEOPOROSIS
     Dosage: 20 UG/1 DAY
     Dates: start: 20040720
  2. EVOXAC [Concomitant]
  3. PREDNISONE [Concomitant]
  4. IMURAN [Concomitant]
  5. SYNTHROID [Concomitant]
  6. ASPIRIN [Concomitant]
  7. AMITRIPTYLINE HCL [Concomitant]
  8. ZOLOFT [Concomitant]
  9. CALCIUM PLUS D [Concomitant]
  10. MULTI-VITAMINS [Concomitant]
  11. AXID [Concomitant]

REACTIONS (4)
  - BURNING SENSATION [None]
  - CONJUNCTIVITIS [None]
  - EYE DISCHARGE [None]
  - LACRIMATION INCREASED [None]
